FAERS Safety Report 17582190 (Version 1)
Quarter: 2020Q1

REPORT INFORMATION
  Report Type: Spontaneous
  Country: ES (occurrence: ES)
  Receive Date: 20200325
  Receipt Date: 20200325
  Transmission Date: 20200409
  Serious: Yes (Other)
  Sender: FDA-Public Use
  Company Number: ES-PFIZER INC-2020116428

PATIENT
  Age: 33 Year
  Sex: Female

DRUGS (3)
  1. LOETTE DIARIO [Suspect]
     Active Substance: ETHINYL ESTRADIOL\LEVONORGESTREL
     Indication: ORAL CONTRACEPTION
     Dosage: 100/20 UG
     Route: 048
     Dates: start: 202003, end: 202003
  2. INSULIN [Concomitant]
     Active Substance: INSULIN NOS
     Indication: DIABETES MELLITUS
     Dosage: 14 UNITS
  3. PARACETAMOL [Concomitant]
     Active Substance: ACETAMINOPHEN

REACTIONS (4)
  - Headache [Recovered/Resolved]
  - Photophobia [Recovered/Resolved]
  - Migraine [Recovered/Resolved]
  - Hyperglycaemia [Recovered/Resolved]

NARRATIVE: CASE EVENT DATE: 202003
